FAERS Safety Report 7201216-1 (Version None)
Quarter: 2010Q4

REPORT INFORMATION
  Report Type: 
  Country: None (occurrence: None)
  Receive Date: 20101227
  Receipt Date: 20101227
  Transmission Date: 20110411
  Serious: Yes (Other)
  Sender: FDA-Public Use
  Company Number: None

PATIENT
  Age: 86 Year
  Sex: Male
  Weight: 90.7194 kg

DRUGS (13)
  1. BISACODYL [Suspect]
     Indication: CONSTIPATION
     Dosage: 15 MG HS DAILY PO
     Route: 048
     Dates: start: 20101210, end: 20101215
  2. LASIX [Concomitant]
  3. METFORMIN HCL [Concomitant]
  4. PROVIGIL [Concomitant]
  5. PLAVIX [Concomitant]
  6. ASPIRIN [Concomitant]
  7. CAPTOPRIL [Concomitant]
  8. GLIPAZIDE [Concomitant]
  9. TRAZODONE HCL [Concomitant]
  10. ARICEPT [Concomitant]
  11. FLOMAX [Concomitant]
  12. VETRAL LA [Concomitant]
  13. LORATADINE [Concomitant]

REACTIONS (3)
  - CONSTIPATION [None]
  - DRUG INEFFECTIVE [None]
  - PRODUCT SUBSTITUTION ISSUE [None]
